FAERS Safety Report 5161343-X (Version None)
Quarter: 2006Q4

REPORT INFORMATION
  Report Type: 
  Country: None (occurrence: None)
  Receive Date: 20061121
  Receipt Date: 20061109
  Transmission Date: 20070319
  Serious: Yes (Hospitalization)
  Sender: FDA-Public Use
  Company Number: 2006139026

PATIENT
  Age: 57 Year
  Sex: Male

DRUGS (2)
  1. NIFEDIPINE [Suspect]
     Dosage: 600 MG, ORAL
     Route: 048
  2. ACETAMINOPHEN [Suspect]
     Dosage: ORAL
     Route: 048

REACTIONS (5)
  - ELECTROCARDIOGRAM POOR R-WAVE PROGRESSION [None]
  - FLUSHING [None]
  - HYPOTENSION [None]
  - MULTIPLE DRUG OVERDOSE [None]
  - TACHYCARDIA [None]
